FAERS Safety Report 16760027 (Version 1)
Quarter: 2019Q3

REPORT INFORMATION
  Report Type: Spontaneous
  Country: HR (occurrence: HR)
  Receive Date: 20190830
  Receipt Date: 20190830
  Transmission Date: 20191005
  Serious: Yes (Death, Hospitalization, Other)
  Sender: FDA-Public Use
  Company Number: HR-JNJFOC-20190835194

PATIENT
  Age: 86 Year
  Sex: Male

DRUGS (3)
  1. DEXAMETHAZONE [Suspect]
     Active Substance: DEXAMETHASONE
     Indication: PLASMA CELL MYELOMA
     Route: 065
     Dates: start: 201907
  2. BORTEZOMIB. [Suspect]
     Active Substance: BORTEZOMIB
     Indication: PLASMA CELL MYELOMA
     Route: 065
     Dates: start: 201907
  3. DARZALEX [Suspect]
     Active Substance: DARATUMUMAB
     Indication: PLASMA CELL MYELOMA
     Route: 042
     Dates: start: 201907

REACTIONS (4)
  - Haemothorax [Fatal]
  - Fall [Fatal]
  - Heart injury [Fatal]
  - Rib fracture [Fatal]

NARRATIVE: CASE EVENT DATE: 201908
